FAERS Safety Report 13521644 (Version 1)
Quarter: 2017Q2

REPORT INFORMATION
  Report Type: Spontaneous
  Country: US (occurrence: US)
  Receive Date: 20170506
  Receipt Date: 20170506
  Transmission Date: 20170830
  Serious: Yes (Disabling)
  Sender: FDA-Public Use
  Company Number: None

PATIENT
  Age: 5 Year
  Sex: Male
  Weight: 16.65 kg

DRUGS (4)
  1. MULTIVITAMIN [Concomitant]
     Active Substance: VITAMINS
  2. MIRALAX [Suspect]
     Active Substance: POLYETHYLENE GLYCOL 3350
     Indication: CONSTIPATION
     Dosage: QUANTITY:1 CAPFUL;?
     Route: 048
     Dates: end: 20170505
  3. PROBIOTIC [Concomitant]
     Active Substance: PROBIOTICS NOS
  4. GUMMY FIBER [Concomitant]

REACTIONS (9)
  - Abnormal behaviour [None]
  - Mood swings [None]
  - Attention deficit/hyperactivity disorder [None]
  - Rash [None]
  - Disturbance in attention [None]
  - Coordination abnormal [None]
  - Autism spectrum disorder [None]
  - Speech disorder [None]
  - Staphylococcal infection [None]

NARRATIVE: CASE EVENT DATE: 20130201
